FAERS Safety Report 16375826 (Version 1)
Quarter: 2019Q2

REPORT INFORMATION
  Report Type: Spontaneous
  Country: ES (occurrence: ES)
  Receive Date: 20190531
  Receipt Date: 20190531
  Transmission Date: 20190711
  Serious: Yes (Other)
  Sender: FDA-Public Use
  Company Number: ES-BRISTOL-MYERS SQUIBB COMPANY-BMS-2019-049937

PATIENT
  Age: 80 Year
  Sex: Female

DRUGS (5)
  1. HYDREA [Suspect]
     Active Substance: HYDROXYUREA
     Indication: ESSENTIAL THROMBOCYTHAEMIA
     Dosage: 500 MILLIGRAM, Q8H
     Route: 048
     Dates: start: 2004, end: 201803
  2. ZYLORIC [Concomitant]
     Active Substance: ALLOPURINOL
     Indication: HYPERURICAEMIA
     Dosage: 100 MILLIGRAM, QD
     Route: 048
  3. ADIRO [Concomitant]
     Active Substance: ASPIRIN
     Indication: THROMBOSIS PROPHYLAXIS
     Dosage: 100 MILLIGRAM, QD
     Route: 048
     Dates: end: 20180423
  4. OMEPRAZOL [OMEPRAZOLE] [Concomitant]
     Active Substance: OMEPRAZOLE
     Indication: DYSPEPSIA
     Dosage: 20 MILLIGRAM, Q8H
     Route: 048
  5. ANEUROL [THIAMINE HYDROCHLORIDE] [Concomitant]
     Indication: ANXIETY
     Dosage: 1 DOSAGE FORM, QD
     Route: 048

REACTIONS (2)
  - Skin ulcer [Recovering/Resolving]
  - Malignant neoplasm of eye [Recovering/Resolving]

NARRATIVE: CASE EVENT DATE: 2016
